FAERS Safety Report 9134583 (Version 2)
Quarter: 2013Q2

REPORT INFORMATION
  Report Type: Spontaneous
  Country: AU (occurrence: AU)
  Receive Date: 20130304
  Receipt Date: 20130510
  Transmission Date: 20140414
  Serious: Yes (Hospitalization, Other)
  Sender: FDA-Public Use
  Company Number: PHHY2013AU020191

PATIENT
  Age: 34 Year
  Sex: Female
  Weight: 58 kg

DRUGS (7)
  1. ACLASTA [Suspect]
     Indication: OSTEOPOROSIS
     Dosage: 5 MG
     Route: 042
     Dates: start: 20111021
  2. METHOTREXATE [Concomitant]
     Dosage: 20-25MG WEEKLY
     Route: 048
  3. PREDNISOLONE [Concomitant]
     Dosage: 10-50 MG DAILY
     Route: 048
  4. CITRACAL + D [Concomitant]
     Dosage: UNK
     Route: 048
  5. PLAQUENIL [Concomitant]
     Dosage: UNK
  6. LIPITOR [Concomitant]
     Dosage: UNK
  7. RAMIPRIL [Concomitant]
     Dosage: UNK

REACTIONS (1)
  - Atypical femur fracture [Recovered/Resolved]
